FAERS Safety Report 9984594 (Version 1)
Quarter: 2014Q1

REPORT INFORMATION
  Report Type: Spontaneous
  Country: IT (occurrence: IT)
  Receive Date: 20140307
  Receipt Date: 20140307
  Transmission Date: 20141002
  Serious: Yes (Hospitalization, Other)
  Sender: FDA-Public Use
  Company Number: IT-AMGEN-ITASP2014015028

PATIENT
  Age: 72 Year
  Sex: Male

DRUGS (12)
  1. ARANESP [Suspect]
     Indication: ANAEMIA
     Dosage: 1 DF, QD
     Route: 058
     Dates: start: 20130312, end: 20130320
  2. ALLOPURINOL [Suspect]
     Indication: PRODUCT USED FOR UNKNOWN INDICATION
     Dosage: UNK UNK, QD, 1 POSOLOGIC UNIT
     Route: 048
     Dates: start: 20130201, end: 20130320
  3. TEVAGRASTIM [Suspect]
     Indication: NEUTROPENIA
     Dosage: UNK UNK, QD, 1 POSOLOGIC UNIT
     Route: 058
     Dates: start: 20130316, end: 20130320
  4. CYCLOPHOSPHAMIDE [Concomitant]
     Indication: CHRONIC LYMPHOCYTIC LEUKAEMIA
     Dosage: 750 MG, UNK
     Route: 042
     Dates: start: 20130131
  5. ACICLOVIR [Concomitant]
     Dosage: UNK
     Route: 065
  6. MABTHERA [Concomitant]
     Indication: CHRONIC LYMPHOCYTIC LEUKAEMIA
     Dosage: 690 MG, UNK
     Route: 042
     Dates: start: 20130131
  7. BACTRIM [Concomitant]
     Dosage: UNK
     Route: 065
  8. METHYLPREDNISOLONE [Concomitant]
     Dosage: UNK
     Route: 065
  9. LORATADINE [Concomitant]
     Dosage: 10 MG, UNK
     Route: 065
  10. OMEPRAZOLE [Concomitant]
     Dosage: 20 MG, UNK
     Route: 065
  11. RITUXIMAB [Concomitant]
     Dosage: UNK
     Route: 065
  12. FLUDARABINE [Concomitant]
     Indication: CHRONIC LYMPHOCYTIC LEUKAEMIA
     Dosage: 11 MG, UNK
     Route: 042

REACTIONS (3)
  - Dermatitis exfoliative [Recovering/Resolving]
  - Lichenoid keratosis [Recovering/Resolving]
  - Skin hyperpigmentation [Unknown]
